FAERS Safety Report 10079462 (Version 2)
Quarter: 2014Q2

REPORT INFORMATION
  Report Type: Report from Study
  Country: US (occurrence: US)
  Receive Date: 20140415
  Receipt Date: 20140513
  Transmission Date: 20141212
  Serious: Yes (Death, Hospitalization)
  Sender: FDA-Public Use
  Company Number: US-ACTELION-A-US2014-97155

PATIENT
  Age: 62 Year
  Sex: Male

DRUGS (1)
  1. VELETRI [Suspect]
     Indication: SARCOIDOSIS
     Dosage: 8 NG/KG, PER MIN
     Route: 042
     Dates: start: 20140307

REACTIONS (1)
  - Death [Fatal]
